FAERS Safety Report 18980727 (Version 2)
Quarter: 2021Q2

REPORT INFORMATION
  Report Type: Spontaneous
  Country: DE (occurrence: DE)
  Receive Date: 20210308
  Receipt Date: 20210416
  Transmission Date: 20210717
  Serious: Yes (Hospitalization)
  Sender: FDA-Public Use
  Company Number: NVSC2021DE047876

PATIENT
  Age: 55 Year
  Sex: Male

DRUGS (8)
  1. OXALIPLATIN. [Suspect]
     Active Substance: OXALIPLATIN
     Dosage: 180 MG, CYCLIC
     Route: 042
     Dates: start: 20201123
  2. OXALIPLATIN. [Suspect]
     Active Substance: OXALIPLATIN
     Indication: COLORECTAL CANCER METASTATIC
     Dosage: 180 MG, CYCLIC (180 MG, QCY)
     Route: 042
     Dates: start: 20200914, end: 20200914
  3. CALCIUM LEVOFOLINATE [Suspect]
     Active Substance: LEVOLEUCOVORIN CALCIUM
     Indication: COLORECTAL CANCER METASTATIC
     Dosage: 740 MG, CYCLIC
     Route: 042
     Dates: start: 20200914, end: 20200914
  4. FLUOROURACIL. [Suspect]
     Active Substance: FLUOROURACIL
     Indication: COLORECTAL CANCER METASTATIC
     Dosage: 5100 MG, CYCLIC (5100 MG, QCY)
     Route: 042
     Dates: start: 20200914, end: 20200914
  5. AFLIBERCEPT [Suspect]
     Active Substance: AFLIBERCEPT
     Dosage: 310 MG, CYCLIC (310 MG, QCY)
     Route: 042
     Dates: start: 20201109
  6. FLUOROURACIL. [Suspect]
     Active Substance: FLUOROURACIL
     Dosage: 5100 MG, CYCLIC (5100 MG, QCY)
     Route: 042
     Dates: start: 20201123, end: 20201123
  7. AFLIBERCEPT [Suspect]
     Active Substance: AFLIBERCEPT
     Indication: COLORECTAL CANCER METASTATIC
     Dosage: 310 MG
     Route: 042
     Dates: start: 20200914, end: 20200914
  8. CALCIUM LEVOFOLINATE [Suspect]
     Active Substance: LEVOLEUCOVORIN CALCIUM
     Dosage: 740 MG, QCY
     Route: 042
     Dates: start: 20201123, end: 20201123

REACTIONS (2)
  - Anastomotic leak [Not Recovered/Not Resolved]
  - Ileus [Recovered/Resolved]

NARRATIVE: CASE EVENT DATE: 20210210
